FAERS Safety Report 6317164-5 (Version None)
Quarter: 2009Q3

REPORT INFORMATION
  Report Type: 
  Country: None (occurrence: None)
  Receive Date: 20090819
  Receipt Date: 20090807
  Transmission Date: 20100115
  Serious: No
  Sender: FDA-Public Use
  Company Number: 236012K09USA

PATIENT
  Age: 28 Year
  Sex: Female

DRUGS (1)
  1. REBIF [Suspect]
     Indication: MULTIPLE SCLEROSIS
     Dosage: NOT REPORTED, SUBCUTANEOUS
     Route: 058
     Dates: end: 20080815

REACTIONS (3)
  - DIZZINESS [None]
  - FALL [None]
  - UNEVALUABLE EVENT [None]
